FAERS Safety Report 8857310 (Version 2)
Quarter: 2013Q1

REPORT INFORMATION
  Report Type: Spontaneous
  Country: US (occurrence: US)
  Receive Date: 20121024
  Receipt Date: 20130326
  Transmission Date: 20140127
  Serious: No
  Sender: FDA-Public Use
  Company Number: US-BIOGENIDEC-2012BI044969

PATIENT
  Age: 43 Year
  Sex: Male

DRUGS (1)
  1. TYSABRI [Suspect]
     Indication: MULTIPLE SCLEROSIS
     Route: 042
     Dates: start: 20110331

REACTIONS (4)
  - Gait disturbance [Not Recovered/Not Resolved]
  - General symptom [Recovered/Resolved]
  - Loss of control of legs [Recovered/Resolved]
  - Asthenia [Not Recovered/Not Resolved]
